FAERS Safety Report 7049116-4 (Version None)
Quarter: 2010Q4

REPORT INFORMATION
  Report Type: 
  Country: None (occurrence: None)
  Receive Date: 20101018
  Receipt Date: 20101008
  Transmission Date: 20110411
  Serious: Yes (Other)
  Sender: FDA-Public Use
  Company Number: IT-NOVOPROD-314584

PATIENT
  Sex: Male

DRUGS (2)
  1. PROTAPHANE [Suspect]
     Indication: DIABETES MELLITUS
     Dosage: UNK
     Dates: start: 20090801
  2. HUMALOG [Suspect]
     Indication: DIABETES MELLITUS
     Dosage: UNK
     Dates: start: 20090801

REACTIONS (3)
  - CONFUSIONAL STATE [None]
  - HYPOGLYCAEMIA [None]
  - MALAISE [None]
